FAERS Safety Report 9277534 (Version 1)
Quarter: 2013Q2

REPORT INFORMATION
  Report Type: Spontaneous
  Country: US (occurrence: US)
  Receive Date: 20130508
  Receipt Date: 20130508
  Transmission Date: 20140414
  Serious: Yes (Other)
  Sender: FDA-Public Use
  Company Number: US-ELI_LILLY_AND_COMPANY-US201304008984

PATIENT
  Sex: Female

DRUGS (4)
  1. CYMBALTA [Suspect]
     Indication: FIBROMYALGIA
     Dosage: 30 MG, QD
     Dates: start: 201302
  2. CYMBALTA [Suspect]
     Dosage: 60 MG, QD
     Dates: end: 20130427
  3. LORTAB [Concomitant]
  4. FLEXERIL [Concomitant]

REACTIONS (10)
  - Blister [Unknown]
  - Skin exfoliation [Unknown]
  - Skin exfoliation [Unknown]
  - Blister [Unknown]
  - Visual acuity reduced [Unknown]
  - Neck pain [Unknown]
  - Headache [Unknown]
  - Myalgia [Unknown]
  - Musculoskeletal stiffness [Unknown]
  - Hypoacusis [Unknown]
